FAERS Safety Report 13015649 (Version 2)
Quarter: 2017Q1

REPORT INFORMATION
  Report Type: Other
  Country: JP (occurrence: JP)
  Receive Date: 20161212
  Receipt Date: 20170123
  Transmission Date: 20170428
  Serious: Yes (Hospitalization, Other)
  Sender: FDA-Public Use
  Company Number: JP-AJANTA PHARMA USA INC.-1060669

PATIENT
  Age: 84 Year
  Sex: Female

DRUGS (3)
  1. MEMANTINE HYDROCHLORIDE. [Suspect]
     Active Substance: MEMANTINE HYDROCHLORIDE
     Indication: DEMENTIA ALZHEIMER^S TYPE
  2. AMLODIPINE [Concomitant]
     Active Substance: AMLODIPINE BESYLATE
  3. LANSOPRAZOLE. [Concomitant]
     Active Substance: LANSOPRAZOLE

REACTIONS (4)
  - Loss of consciousness [Unknown]
  - Pneumonia [Recovered/Resolved]
  - Myoclonus [Unknown]
  - Drug level increased [Unknown]

NARRATIVE: CASE EVENT DATE: 20160808
